FAERS Safety Report 9638016 (Version 2)
Quarter: 2013Q4

REPORT INFORMATION
  Report Type: Spontaneous
  Country: FR (occurrence: FR)
  Receive Date: 20131022
  Receipt Date: 20131118
  Transmission Date: 20140711
  Serious: Yes (Life-Threatening, Hospitalization, Other)
  Sender: FDA-Public Use
  Company Number: PHHY2013FR118400

PATIENT
  Age: 85 Year
  Sex: Female

DRUGS (10)
  1. VOLTARENE LP [Suspect]
     Indication: SCIATICA
     Dosage: 75 MG, QD
     Route: 048
     Dates: start: 201307, end: 20130813
  2. PRADAXA [Suspect]
     Indication: ATRIAL FIBRILLATION
     Dosage: 150 MG, BID
     Route: 048
     Dates: start: 201307, end: 20130813
  3. KARDEGIC [Interacting]
     Dosage: 75 MG, UNK
     Route: 048
  4. CORDARONE [Concomitant]
     Dosage: 200 MG, QD
     Route: 048
  5. SECTRAL [Concomitant]
     Dosage: 200 MG, QD
     Route: 048
  6. LOXEN [Concomitant]
     Dosage: 50 MG, BID
     Route: 048
  7. TAHOR [Concomitant]
     Dosage: 10 MG, QD
     Route: 048
  8. COAPROVEL [Concomitant]
     Dosage: UNK UKN, QD
  9. EUPANTOL [Concomitant]
     Dosage: 20 MG, QD
     Route: 048
  10. ESBERIVEN [Concomitant]
     Dosage: UNK UKN, UNK

REACTIONS (9)
  - Gastrointestinal haemorrhage [Recovered/Resolved]
  - Melaena [Unknown]
  - Asthenia [Unknown]
  - Weight decreased [Unknown]
  - Abdominal pain [Unknown]
  - Faeces discoloured [Unknown]
  - Drug interaction [Unknown]
  - Anaemia [Unknown]
  - Nausea [Unknown]
